FAERS Safety Report 9681949 (Version 1)
Quarter: 2013Q4

REPORT INFORMATION
  Report Type: Spontaneous
  Country: US (occurrence: US)
  Receive Date: 20131111
  Receipt Date: 20131111
  Transmission Date: 20140711
  Serious: Yes (Hospitalization)
  Sender: FDA-Public Use
  Company Number: US-TMC-CABO-13003599

PATIENT
  Age: 83 Year
  Sex: Male
  Weight: 90.27 kg

DRUGS (4)
  1. COMETRIQ [Suspect]
     Indication: THYROID CANCER
     Dosage: 140 MG, QD
     Route: 048
     Dates: start: 20130630, end: 20131002
  2. SYNTHROID [Concomitant]
  3. VALSARTAN [Concomitant]
  4. DIURETICS [Concomitant]

REACTIONS (3)
  - Renal failure acute [Unknown]
  - Hypotension [Unknown]
  - Diarrhoea [Unknown]
